FAERS Safety Report 6563915-4 (Version None)
Quarter: 2010Q1

REPORT INFORMATION
  Report Type: 
  Country: None (occurrence: None)
  Receive Date: 20100131
  Receipt Date: 20100119
  Transmission Date: 20100710
  Serious: Yes (Other)
  Sender: FDA-Public Use
  Company Number: CH-JNJFOC-20100107913

PATIENT
  Age: 42 Year
  Sex: Male

DRUGS (2)
  1. REMICADE [Suspect]
     Indication: CROHN'S DISEASE
     Route: 042
  2. METHOTREXATE [Concomitant]
     Indication: CROHN'S DISEASE
     Route: 048

REACTIONS (2)
  - DERMATOPHYTOSIS [None]
  - MERALGIA PARAESTHETICA [None]
